FAERS Safety Report 9159907 (Version 2)
Quarter: 2013Q1

REPORT INFORMATION
  Report Type: Spontaneous
  Country: KW (occurrence: None)
  Receive Date: 20130213
  Receipt Date: 20130221
  Transmission Date: 20140127
  Serious: Yes (Hospitalization)
  Sender: FDA-Public Use
  Company Number: OTH-LIT-2013002

PATIENT
  Age: 7 Year
  Sex: Male

DRUGS (6)
  1. CYSTADANE [Suspect]
     Indication: HOMOCYSTINURIA
     Route: 048
  2. VITAMIN B12 [Concomitant]
  3. FOLIC ACID [Concomitant]
  4. WARFARIN [Concomitant]
  5. DIPYRIDAMOLE [Concomitant]
  6. VITAMIN B6 [Concomitant]

REACTIONS (7)
  - Mesenteric vein thrombosis [None]
  - Lower gastrointestinal haemorrhage [None]
  - Upper respiratory tract infection [None]
  - Abdominal pain [None]
  - Haematochezia [None]
  - Intestinal ischaemia [None]
  - Treatment noncompliance [None]
